FAERS Safety Report 20828267 (Version 4)
Quarter: 2024Q3

REPORT INFORMATION
  Report Type: Spontaneous
  Country: US (occurrence: US)
  Receive Date: 20220513
  Receipt Date: 20240924
  Transmission Date: 20241017
  Serious: Yes (Other)
  Sender: SANOFI AVENTIS
  Company Number: US-SA-SAC20220509001636

PATIENT
  Age: 54 Year
  Sex: Female
  Weight: 59.5 kg

DRUGS (37)
  1. DUPIXENT [Suspect]
     Active Substance: DUPILUMAB
     Indication: Nasal polyps
     Dosage: 300 MG, QOW
     Route: 058
  2. DUPIXENT [Suspect]
     Active Substance: DUPILUMAB
     Indication: Dermatitis atopic
  3. DROXIDOPA [Concomitant]
     Active Substance: DROXIDOPA
     Indication: Hypotension
  4. MODERNA COVID-19 VACCINE [Concomitant]
     Active Substance: ELASOMERAN
     Indication: Immunisation
     Dosage: UNK
  5. MODERNA COVID-19 VACCINE [Concomitant]
     Active Substance: ELASOMERAN
     Dosage: UNK
  6. TIZANIDINE HYDROCHLORIDE [Concomitant]
     Active Substance: TIZANIDINE HYDROCHLORIDE
  7. SERTRALINE HYDROCHLORIDE [Concomitant]
     Active Substance: SERTRALINE HYDROCHLORIDE
  8. RYTARY [Concomitant]
     Active Substance: CARBIDOPA\LEVODOPA
     Dosage: UNK
  9. PROAIR HFA [Concomitant]
     Active Substance: ALBUTEROL SULFATE
  10. METHIMAZOLE [Concomitant]
     Active Substance: METHIMAZOLE
  11. MELATONIN [Concomitant]
     Active Substance: MELATONIN
  12. HIZENTRA [Concomitant]
     Active Substance: HUMAN IMMUNOGLOBULIN G
  13. ALLEGRA ALLERGY [Concomitant]
     Active Substance: FEXOFENADINE HYDROCHLORIDE
  14. ESTRADIOL [Concomitant]
     Active Substance: ESTRADIOL
  15. CRANBERRY [Concomitant]
     Active Substance: CRANBERRY
  16. COLACE [Concomitant]
     Active Substance: DOCUSATE SODIUM
  17. CALCIUM\CHOLECALCIFEROL [Concomitant]
     Active Substance: CALCIUM\CHOLECALCIFEROL
     Dosage: FORMULATION: TABLET ER
  18. CLONAZEPAM [Concomitant]
     Active Substance: CLONAZEPAM
  19. BUDESONIDE [Concomitant]
     Active Substance: BUDESONIDE
  20. BREO ELLIPTA [Concomitant]
     Active Substance: FLUTICASONE FUROATE\VILANTEROL TRIFENATATE
  21. AMITIZA [Concomitant]
     Active Substance: LUBIPROSTONE
  22. AMANTADINE [Concomitant]
     Active Substance: AMANTADINE
  23. AUVI-Q [Concomitant]
     Active Substance: EPINEPHRINE
  24. VITAMIN C [Concomitant]
     Active Substance: ASCORBIC ACID
  25. B12 ACTIVE [Concomitant]
  26. MELATONIN [Concomitant]
     Active Substance: MELATONIN
  27. BIFIDOBACTERIUM LONGUM\LACTOBACILLUS ACIDOPHILUS\LACTOBACILLUS RHAMNOS [Concomitant]
     Active Substance: BIFIDOBACTERIUM LONGUM\LACTOBACILLUS ACIDOPHILUS\LACTOBACILLUS RHAMNOSUS
  28. MELATONIN [Concomitant]
     Active Substance: MELATONIN
  29. CELEBREX [Concomitant]
     Active Substance: CELECOXIB
  30. PROAIR DIGIHALER [Concomitant]
     Active Substance: ALBUTEROL SULFATE
  31. GABAPENTIN [Concomitant]
     Active Substance: GABAPENTIN
  32. VITAMIN D3 [Concomitant]
     Active Substance: CHOLECALCIFEROL
  33. VITAMIN B12 [Concomitant]
     Active Substance: CYANOCOBALAMIN
  34. PULMICORT TURBUHALER [Concomitant]
     Active Substance: BUDESONIDE
  35. XHANCE [Concomitant]
     Active Substance: FLUTICASONE PROPIONATE
  36. BACLOFEN [Concomitant]
     Active Substance: BACLOFEN
  37. GABAPENTIN [Concomitant]
     Active Substance: GABAPENTIN

REACTIONS (6)
  - Loss of consciousness [Unknown]
  - Hypotension [Unknown]
  - Hypokinesia [Unknown]
  - Blood pressure increased [Unknown]
  - Heart rate increased [Unknown]
  - Dizziness [Unknown]
